FAERS Safety Report 8336264 (Version 3)
Quarter: 2015Q1

REPORT INFORMATION
  Report Type: Report from Study
  Country: US (occurrence: US)
  Receive Date: 20120113
  Receipt Date: 20150303
  Transmission Date: 20150721
  Serious: Yes (Death, Hospitalization)
  Sender: FDA-Public Use
  Company Number: US-ROCHE-1029306

PATIENT
  Age: 58 Year
  Sex: Female
  Weight: 133 kg

DRUGS (16)
  1. AMLODIPINE [Concomitant]
     Active Substance: AMLODIPINE BESYLATE
     Route: 065
  2. VISIPAQUE [Concomitant]
     Active Substance: IODIXANOL
     Route: 042
  3. SPIRONOLACTONE. [Concomitant]
     Active Substance: SPIRONOLACTONE
     Route: 065
  4. ARANESP [Concomitant]
     Active Substance: DARBEPOETIN ALFA
  5. AVALIDE [Concomitant]
     Active Substance: HYDROCHLOROTHIAZIDE\IRBESARTAN
     Dosage: 150/12.5
     Route: 048
  6. AVASTIN [Suspect]
     Active Substance: BEVACIZUMAB
     Indication: RENAL CANCER
     Route: 065
  7. LASIX [Concomitant]
     Active Substance: FUROSEMIDE
     Dosage: PRN- AS REQUIRED
     Route: 065
  8. VICODIN [Concomitant]
     Active Substance: ACETAMINOPHEN\HYDROCODONE BITARTRATE
  9. CLARITIN [Concomitant]
     Active Substance: LORATADINE
  10. DURAGESIC [Concomitant]
     Active Substance: FENTANYL
  11. ENALAPRIL [Concomitant]
     Active Substance: ENALAPRIL
     Route: 065
  12. TORISEL [Suspect]
     Active Substance: TEMSIROLIMUS
     Indication: RENAL CANCER
     Route: 065
     Dates: start: 20071217
  13. LOPID [Concomitant]
     Active Substance: GEMFIBROZIL
  14. COUMADIN [Concomitant]
     Active Substance: WARFARIN SODIUM
  15. GEMZAR [Concomitant]
     Active Substance: GEMCITABINE HYDROCHLORIDE
  16. PHYTONADIONE. [Concomitant]
     Active Substance: PHYTONADIONE

REACTIONS (29)
  - Dyspnoea exertional [Recovering/Resolving]
  - Obesity [Unknown]
  - Anxiety [Unknown]
  - Hypertriglyceridaemia [Unknown]
  - Death [Fatal]
  - Oedema peripheral [Unknown]
  - Epistaxis [Unknown]
  - Metastases to lung [Unknown]
  - Hypoxia [Unknown]
  - Tenderness [Unknown]
  - Nasopharyngitis [Unknown]
  - Decreased appetite [Unknown]
  - Diarrhoea [Unknown]
  - Off label use [Unknown]
  - Leukocytosis [Unknown]
  - Blood creatinine increased [Unknown]
  - Back pain [Unknown]
  - Nephropathy toxic [Fatal]
  - Red blood cell count decreased [Fatal]
  - Feeling abnormal [Fatal]
  - Cardiac failure congestive [Unknown]
  - Metastases to pancreas [Unknown]
  - Aortic arteriosclerosis [Unknown]
  - Retroperitoneal lymphadenopathy [Unknown]
  - Abdominal discomfort [Unknown]
  - Fatigue [Unknown]
  - Cough [Fatal]
  - Renal failure [Fatal]
  - Hypertension [Unknown]

NARRATIVE: CASE EVENT DATE: 20080206
